FAERS Safety Report 8583652-4 (Version None)
Quarter: 2012Q3

REPORT INFORMATION
  Report Type: 
  Country: None (occurrence: None)
  Receive Date: 20120809
  Receipt Date: 20120703
  Transmission Date: 20120928
  Serious: Yes (Hospitalization, Other)
  Sender: FDA-Public Use
  Company Number: US-009507513-2012SP011840

PATIENT

DRUGS (4)
  1. NUVARING [Suspect]
     Indication: CONTRACEPTION
     Dosage: UNK
     Dates: start: 20060101
  2. PLAVIX [Suspect]
     Indication: ANTICOAGULANT THERAPY
  3. NUVARING [Suspect]
     Dosage: UNK
     Dates: start: 20080101, end: 20090301
  4. NUVARING [Suspect]
     Indication: MENSTRUATION IRREGULAR
     Dosage: UNK
     Dates: start: 20070601, end: 20071201

REACTIONS (35)
  - DRUG HYPERSENSITIVITY [None]
  - TONSILLECTOMY [None]
  - ABORTION [None]
  - VAGINITIS BACTERIAL [None]
  - HAND FRACTURE [None]
  - ABDOMINAL PAIN UPPER [None]
  - INGROWING NAIL [None]
  - ACROCHORDON [None]
  - VASCULAR PROCEDURE COMPLICATION [None]
  - INTRACRANIAL VENOUS SINUS THROMBOSIS [None]
  - HAEMATURIA [None]
  - BLOOD IRON DECREASED [None]
  - GONORRHOEA [None]
  - RASH [None]
  - VULVOVAGINAL PAIN [None]
  - VULVOVAGINAL CANDIDIASIS [None]
  - DIPHTHERIA [None]
  - CHLAMYDIAL INFECTION [None]
  - VARICOSE VEIN [None]
  - DYSFUNCTIONAL UTERINE BLEEDING [None]
  - DEEP VEIN THROMBOSIS [None]
  - AXILLARY VEIN THROMBOSIS [None]
  - VULVOVAGINAL DISCOMFORT [None]
  - URINARY TRACT INFECTION [None]
  - CONJUNCTIVITIS [None]
  - HEADACHE [None]
  - DEVICE EXPULSION [None]
  - SUBARACHNOID HAEMORRHAGE [None]
  - VIRAL INFECTION [None]
  - UPPER RESPIRATORY TRACT INFECTION [None]
  - OROPHARYNGEAL PAIN [None]
  - THROMBOSIS [None]
  - VENOUS THROMBOSIS [None]
  - MUSCLE SPASMS [None]
  - MIGRAINE [None]
